FAERS Safety Report 7737415-X (Version None)
Quarter: 2011Q3

REPORT INFORMATION
  Report Type: 
  Country: None (occurrence: None)
  Receive Date: 20110908
  Receipt Date: 20110826
  Transmission Date: 20111222
  Serious: Yes (Death, Hospitalization)
  Sender: FDA-Public Use
  Company Number: US-GLAXOSMITHKLINE-A0722950A

PATIENT
  Age: 59 Year
  Sex: Male
  Weight: 88.6 kg

DRUGS (8)
  1. METFORMIN HCL [Concomitant]
     Dates: start: 20060601
  2. CRESTOR [Concomitant]
     Indication: BLOOD CHOLESTEROL
  3. GLIPIZIDE [Concomitant]
  4. FUROSEMIDE [Concomitant]
     Indication: HYPERTENSION
  5. PLAVIX [Concomitant]
     Indication: CARDIAC VALVE DISEASE
  6. TOPROL-XL [Concomitant]
     Indication: CORONARY ARTERY DISEASE
  7. AVANDIA [Suspect]
     Indication: TYPE 2 DIABETES MELLITUS
     Dosage: 4MG PER DAY
     Route: 048
     Dates: start: 20060726, end: 20070619
  8. TORSEMIDE [Concomitant]
     Indication: HYPERTENSION

REACTIONS (5)
  - ANAEMIA [None]
  - OEDEMA [None]
  - CARDIAC FAILURE CONGESTIVE [None]
  - PNEUMONIA [None]
  - RESPIRATORY FAILURE [None]
